FAERS Safety Report 4829159-9 (Version None)
Quarter: 2005Q4

REPORT INFORMATION
  Report Type: 
  Country: None (occurrence: None)
  Receive Date: 20051027
  Receipt Date: 20050224
  Transmission Date: 20060501
  Serious: Yes (Hospitalization)
  Sender: FDA-Public Use
  Company Number: USA-2005-0019043

PATIENT
  Age: 89 Year
  Sex: Female

DRUGS (8)
  1. SPECTRACEF [Suspect]
     Dosage: UNKNOWN
     Route: 065
  2. ALLERGEN [Concomitant]
  3. TUSSI [Concomitant]
  4. MIACALCIN [Concomitant]
  5. DURAGESIC-100 [Concomitant]
  6. ULTRAM [Concomitant]
  7. TENORMIN [Concomitant]
  8. ASPIRIN [Concomitant]

REACTIONS (1)
  - CLOSTRIDIUM COLITIS [None]
